FAERS Safety Report 15042077 (Version 8)
Quarter: 2019Q1

REPORT INFORMATION
  Report Type: Spontaneous
  Country: US (occurrence: US)
  Receive Date: 20180621
  Receipt Date: 20190320
  Transmission Date: 20190417
  Serious: Yes (Other)
  Sender: FDA-Public Use
  Company Number: US-PFIZER INC-2018248660

PATIENT
  Age: 65 Year
  Sex: Female
  Weight: 137.41 kg

DRUGS (22)
  1. HYDROCHLOROTHIAZIDE. [Concomitant]
     Active Substance: HYDROCHLOROTHIAZIDE
     Indication: FLUID RETENTION
  2. LOSARTAN. [Concomitant]
     Active Substance: LOSARTAN
     Indication: BLOOD PRESSURE ABNORMAL
     Dosage: 100 MG, 1X/DAY
     Route: 048
     Dates: start: 2016
  3. JANTOVEN [Concomitant]
     Active Substance: WARFARIN SODIUM
     Indication: ANTICOAGULANT THERAPY
     Dosage: 5 MG, ALTERNATE DAY ONCE A DAY, ON THURSDAY, SUNDAY, AND TUESDAY, SHE TAKES ONE TABLET)
     Route: 048
     Dates: start: 201602
  4. JANTOVEN [Concomitant]
     Active Substance: WARFARIN SODIUM
     Dosage: 7.5 MG, ALTERNATE DAY (1 AND HALF TABLET ON MONDAYS, WEDNESDAYS, FRIDAYS, AND SATURDAYS)
     Route: 048
     Dates: start: 201602
  5. DILTIAZEM. [Concomitant]
     Active Substance: DILTIAZEM
     Indication: ATRIAL FIBRILLATION
     Dosage: 120 MG, 1X/DAY
     Route: 048
     Dates: start: 201602
  6. HYDRALAZINE [Concomitant]
     Active Substance: HYDRALAZINE HYDROCHLORIDE
     Indication: BLOOD PRESSURE ABNORMAL
     Dosage: 25 MG, 2X/DAY
     Route: 048
  7. ZOMETA [Concomitant]
     Active Substance: ZOLEDRONIC ACID
     Indication: BONE DISORDER
     Dosage: UNK, MONTHLY, [INFUSION]
     Dates: start: 201705
  8. LETROZOLE. [Suspect]
     Active Substance: LETROZOLE
     Indication: NEOPLASM MALIGNANT
  9. GLIPIZIDE. [Concomitant]
     Active Substance: GLIPIZIDE
     Indication: TYPE 2 DIABETES MELLITUS
     Dosage: 5 MG, 1X/DAY
  10. METOPROLOL. [Concomitant]
     Active Substance: METOPROLOL
     Indication: ATRIAL FIBRILLATION
     Dosage: 100 MG, 1X/DAY, [IN THE EVENING]
     Route: 048
     Dates: start: 201603
  11. CITRUCEL [Concomitant]
     Active Substance: METHYLCELLULOSE (4000 MPA.S)
     Indication: DIVERTICULUM
     Dosage: 1 DF, 1X/DAY
     Route: 048
  12. LETROZOLE. [Suspect]
     Active Substance: LETROZOLE
     Indication: BLOOD OESTROGEN ABNORMAL
     Dosage: 2.5 MG, DAILY
     Route: 048
     Dates: start: 201705
  13. B12 1000 SR [Concomitant]
     Indication: VITAMIN B12 DECREASED
     Dosage: 1000 UG, 1X/DAY
     Route: 048
  14. VITAMIN C ACID [Concomitant]
     Active Substance: ASCORBIC ACID
     Indication: VITAMIN C DECREASED
     Dosage: 500 MG, 1X/DAY
     Route: 048
     Dates: start: 2018
  15. VITAMIN C ACID [Concomitant]
     Active Substance: ASCORBIC ACID
     Indication: IMMUNE SYSTEM DISORDER
  16. VITAMIN D3 [Concomitant]
     Active Substance: CHOLECALCIFEROL
     Indication: VITAMIN D DEFICIENCY
     Dosage: 1000 IU, 1X/DAY
     Route: 048
  17. FISH OIL [Concomitant]
     Active Substance: FISH OIL
     Indication: CARDIAC DISORDER
     Dosage: 1 DF, 1X/DAY
     Route: 048
  18. HYDROCHLOROTHIAZIDE. [Concomitant]
     Active Substance: HYDROCHLOROTHIAZIDE
     Indication: HYPERTENSION
     Dosage: 25 MG, 1X/DAY
     Route: 048
  19. GLUCOSAMINE/CHONDROITIN [CHONDROITIN SULFATE;GLUCOSAMINE] [Concomitant]
     Indication: ARTHROPATHY
     Dosage: 1 DF, DAILY, [CHONDROITIN 400 MG/GLUCOSAMINE, 500 MG]
     Route: 048
  20. IBRANCE [Suspect]
     Active Substance: PALBOCICLIB
     Indication: BREAST CANCER METASTATIC
     Dosage: 125 MG, CYCLIC, [ONCE A DAY FOR 21 DAYS OUT OF THE MONTH](21 DAYS ON AND 7 DAYS OFF)
     Route: 048
     Dates: start: 201705
  21. ZOMETA [Concomitant]
     Active Substance: ZOLEDRONIC ACID
     Indication: NEOPLASM MALIGNANT
  22. METFORMIN HCL [Concomitant]
     Active Substance: METFORMIN HYDROCHLORIDE
     Indication: TYPE 2 DIABETES MELLITUS
     Dosage: 1000 MG, 1X/DAY
     Route: 048

REACTIONS (13)
  - Oxygen saturation decreased [Not Recovered/Not Resolved]
  - Cough [Recovering/Resolving]
  - Pulmonary arterial pressure increased [Unknown]
  - Neutrophil count decreased [Recovering/Resolving]
  - Arthropathy [Unknown]
  - Fatigue [Not Recovered/Not Resolved]
  - Pain in extremity [Recovered/Resolved]
  - White blood cell count decreased [Recovering/Resolving]
  - Red blood cell count decreased [Recovering/Resolving]
  - Dyspnoea [Not Recovered/Not Resolved]
  - Cardiomegaly [Unknown]
  - Arthritis [Unknown]
  - Lung disorder [Not Recovered/Not Resolved]

NARRATIVE: CASE EVENT DATE: 2017
